FAERS Safety Report 23847400 (Version 4)
Quarter: 2025Q2

REPORT INFORMATION
  Report Type: Report from Study
  Country: CA (occurrence: CA)
  Receive Date: 20240513
  Receipt Date: 20250620
  Transmission Date: 20250717
  Serious: Yes (Hospitalization, Other)
  Sender: TAKEDA
  Company Number: CA-TAKEDA-2023TUS018941

PATIENT
  Sex: Female

DRUGS (20)
  1. VEDOLIZUMAB [Suspect]
     Active Substance: VEDOLIZUMAB
     Indication: Colitis ulcerative
  2. VEDOLIZUMAB [Suspect]
     Active Substance: VEDOLIZUMAB
  3. WARFARIN [Concomitant]
     Active Substance: WARFARIN
  4. LIPITOR [Concomitant]
     Active Substance: ATORVASTATIN CALCIUM
  5. SYNTHROID [Concomitant]
     Active Substance: LEVOTHYROXINE SODIUM
  6. PLAQUENIL [Concomitant]
     Active Substance: HYDROXYCHLOROQUINE SULFATE
  7. NUCYNTA ER [Concomitant]
     Active Substance: TAPENTADOL HYDROCHLORIDE
  8. NUCYNTA [Concomitant]
     Active Substance: TAPENTADOL HYDROCHLORIDE
  9. WELLBUTRIN XL [Concomitant]
     Active Substance: BUPROPION HYDROCHLORIDE
  10. NABILONE [Concomitant]
     Active Substance: NABILONE
  11. PREDNISONE [Concomitant]
     Active Substance: PREDNISONE
     Indication: Colitis ulcerative
  12. HUMIRA [Concomitant]
     Active Substance: ADALIMUMAB
  13. ATORVASTATIN [Concomitant]
     Active Substance: ATORVASTATIN
  14. PANTOPRAZOLE [Concomitant]
     Active Substance: PANTOPRAZOLE
  15. VITAMIN D [Concomitant]
     Active Substance: VITAMIN D NOS
  16. CALCIUM [Concomitant]
     Active Substance: CALCIUM
  17. CORTIFOAM [Concomitant]
     Active Substance: HYDROCORTISONE ACETATE
  18. FERROUS FUMARATE [Concomitant]
     Active Substance: FERROUS FUMARATE
  19. B12 [Concomitant]
  20. CANNABIS SATIVA SUBSP. INDICA TOP [Concomitant]
     Active Substance: CANNABIS SATIVA SUBSP. INDICA TOP

REACTIONS (6)
  - Pneumothorax spontaneous [Unknown]
  - Procedural pneumothorax [Unknown]
  - Colitis ulcerative [Unknown]
  - Gastritis [Unknown]
  - Rash [Unknown]
  - Sinusitis [Unknown]
